FAERS Safety Report 15410871 (Version 3)
Quarter: 2018Q4

REPORT INFORMATION
  Report Type: Spontaneous
  Country: US (occurrence: US)
  Receive Date: 20180921
  Receipt Date: 20181212
  Transmission Date: 20190204
  Serious: No
  Sender: FDA-Public Use
  Company Number: US-BRISTOL-MYERS SQUIBB COMPANY-BMS-2018-083298

PATIENT
  Sex: Female

DRUGS (1)
  1. NULOJIX [Suspect]
     Active Substance: BELATACEPT
     Indication: RENAL TRANSPLANT
     Dosage: 350 MG, Q4WK
     Route: 042
     Dates: start: 2016, end: 2018

REACTIONS (6)
  - Erythema [Unknown]
  - Gastrointestinal disorder [Unknown]
  - Rash generalised [Unknown]
  - Acne [Unknown]
  - Furuncle [Unknown]
  - Burning sensation [Unknown]
